FAERS Safety Report 25895427 (Version 1)
Quarter: 2025Q4

REPORT INFORMATION
  Report Type: Spontaneous
  Country: EU (occurrence: EU)
  Receive Date: 20251008
  Receipt Date: 20251008
  Transmission Date: 20260118
  Serious: Yes (Other)
  Sender: RANBAXY
  Company Number: EU-SUN PHARMACEUTICAL INDUSTRIES LTD-2025R1-530345

PATIENT
  Age: 26 Year
  Sex: Male
  Weight: 98.6 kg

DRUGS (4)
  1. MESALAMINE [Interacting]
     Active Substance: MESALAMINE
     Indication: Crohn^s disease
     Dosage: UNK (3 G)
     Route: 065
  2. AZATHIOPRINE [Interacting]
     Active Substance: AZATHIOPRINE
     Indication: Crohn^s disease
     Dosage: 100 MILLIGRAM, DAILY
     Route: 065
  3. AZATHIOPRINE [Interacting]
     Active Substance: AZATHIOPRINE
     Dosage: 150 MILLIGRAM, DAILY
     Route: 065
  4. PREDNISONE [Concomitant]
     Active Substance: PREDNISONE
     Indication: Crohn^s disease
     Dosage: 10 MILLIGRAM, DAILY
     Route: 065

REACTIONS (3)
  - Febrile bone marrow aplasia [Recovering/Resolving]
  - Febrile neutropenia [Recovering/Resolving]
  - Drug interaction [Unknown]
